FAERS Safety Report 4806588-0 (Version None)
Quarter: 2005Q4

REPORT INFORMATION
  Report Type: 
  Country: None (occurrence: None)
  Receive Date: 20051019
  Receipt Date: 20051004
  Transmission Date: 20060501
  Serious: Yes (Life-Threatening, Hospitalization, Other)
  Sender: FDA-Public Use
  Company Number: CIP05002363

PATIENT
  Age: 87 Year
  Sex: Female
  Weight: 56.7 kg

DRUGS (7)
  1. ACTONEL [Suspect]
     Dosage: ORAL
     Route: 048
  2. ACTOS [Suspect]
     Indication: DIABETES MELLITUS NON-INSULIN-DEPENDENT
     Dosage: 15 MG DAILY, ORAL
     Route: 048
     Dates: end: 20051004
  3. BACTRIM [Suspect]
     Indication: INFECTION
     Dosage: TWICE DAILY, ORAL
     Route: 048
     Dates: start: 20050927, end: 20050929
  4. DOCUSATE (DOCUSATE) [Concomitant]
  5. ALENDRONATE SODIUM [Concomitant]
  6. OXYBUTYNIN CHLORIDE [Concomitant]
  7. PRILOSEC [Concomitant]

REACTIONS (9)
  - ANAEMIA [None]
  - ASTHENIA [None]
  - INFECTION [None]
  - MAMMOGRAM ABNORMAL [None]
  - MYELODYSPLASTIC SYNDROME [None]
  - PLATELET COUNT DECREASED [None]
  - RASH [None]
  - RED BLOOD CELL COUNT DECREASED [None]
  - WHITE BLOOD CELL COUNT DECREASED [None]
